FAERS Safety Report 6988404-4 (Version None)
Quarter: 2010Q3

REPORT INFORMATION
  Report Type: 
  Country: None (occurrence: None)
  Receive Date: 20100916
  Receipt Date: 20100902
  Transmission Date: 20110219
  Serious: Yes (Other)
  Sender: FDA-Public Use
  Company Number: PHHY2009JP09938

PATIENT
  Sex: Male
  Weight: 105 kg

DRUGS (8)
  1. DIOVAN [Suspect]
     Dosage: 80 MG, QD
     Route: 048
     Dates: start: 20080108, end: 20080806
  2. NORVASC [Concomitant]
     Indication: HYPERTENSION
     Dosage: 5 MG
     Route: 048
     Dates: start: 20080415, end: 20080806
  3. AMARYL [Concomitant]
     Dosage: 0.5 MG
     Route: 048
     Dates: start: 20071128, end: 20080217
  4. BUFORMIN HYDROCHLORIDE [Concomitant]
     Dosage: 100 MG
     Route: 048
     Dates: start: 20080218
  5. NATRIX [Concomitant]
     Dosage: 2 MG
     Route: 048
     Dates: start: 20080828
  6. LASIX [Concomitant]
     Dosage: 80 MG
     Route: 048
     Dates: start: 20080808
  7. LASIX [Concomitant]
     Dosage: 40 MG
     Route: 048
  8. TAKEPRON [Concomitant]
     Dosage: 15 MG
     Route: 048
     Dates: start: 20080906

REACTIONS (1)
  - CEREBRAL HAEMORRHAGE [None]
